FAERS Safety Report 13665504 (Version 1)
Quarter: 2017Q2

REPORT INFORMATION
  Report Type: Spontaneous
  Country: FR (occurrence: FR)
  Receive Date: 20170619
  Receipt Date: 20170619
  Transmission Date: 20170830
  Serious: Yes (Other)
  Sender: FDA-Public Use
  Company Number: FR-BAYER-2017-113565

PATIENT
  Age: 23 Year
  Sex: Female

DRUGS (2)
  1. MIRENA [Suspect]
     Active Substance: LEVONORGESTREL
     Indication: CONTRACEPTION
     Dosage: 20 MCG/24HR, CONT
     Route: 015
     Dates: start: 2002
  2. MIRENA [Suspect]
     Active Substance: LEVONORGESTREL
     Indication: CONTRACEPTION
     Dosage: 20 MCG/24HR, CONT
     Route: 015
     Dates: start: 20140221, end: 20170504

REACTIONS (9)
  - Irritability [Recovered/Resolved]
  - Paraesthesia [Recovered/Resolved]
  - Limb discomfort [Recovered/Resolved]
  - Tachycardia [Recovered/Resolved]
  - Abdominal pain upper [Recovered/Resolved]
  - Bartholinitis [Recovered/Resolved]
  - Anxiety [Recovered/Resolved]
  - Fibroma [Recovered/Resolved]
  - Fatigue [Recovered/Resolved]

NARRATIVE: CASE EVENT DATE: 20110131
